FAERS Safety Report 10891223 (Version 4)
Quarter: 2015Q2

REPORT INFORMATION
  Report Type: Spontaneous
  Country: GB (occurrence: GB)
  Receive Date: 20150306
  Receipt Date: 20150512
  Transmission Date: 20150821
  Serious: Yes (Death, Hospitalization, Other)
  Sender: FDA-Public Use
  Company Number: GB-ASTRAZENECA-2015SE19570

PATIENT
  Age: 39 Year
  Sex: Female

DRUGS (14)
  1. MIRTAZAPINE. [Suspect]
     Active Substance: MIRTAZAPINE
     Indication: ANXIETY
     Route: 065
  2. LORAZEPAM. [Concomitant]
     Active Substance: LORAZEPAM
     Indication: ANXIETY
     Dosage: 0.5-1MG TWICE DAILY / AS NECESSARY FOR 3 DAYS
     Dates: start: 20150204
  3. LAMOTRIGINE. [Suspect]
     Active Substance: LAMOTRIGINE
     Indication: BIPOLAR DISORDER
     Route: 048
     Dates: start: 20121015
  4. LAMOTRIGINE. [Suspect]
     Active Substance: LAMOTRIGINE
     Indication: BIPOLAR DISORDER
     Dosage: 25MG ONCE DAILY, UNIT 3
     Route: 048
     Dates: start: 20150106
  5. QUETIAPINE [Suspect]
     Active Substance: QUETIAPINE
     Indication: BIPOLAR DISORDER
     Route: 048
  6. QUETIAPINE [Suspect]
     Active Substance: QUETIAPINE
     Indication: BIPOLAR DISORDER
     Dosage: 500MG ONCE AT NIGHT PLUS 25-50MG THREE TIMES DAILY / AS NECESSARY
     Route: 048
     Dates: start: 201502
  7. LAMOTRIGINE. [Suspect]
     Active Substance: LAMOTRIGINE
     Indication: BIPOLAR DISORDER
     Dosage: 25MG DAILY FOR 2 WEEKS; 3 UNIT
     Route: 048
  8. QUETIAPINE [Suspect]
     Active Substance: QUETIAPINE
     Indication: BIPOLAR DISORDER
     Route: 048
     Dates: start: 2011, end: 20121015
  9. QUETIAPINE [Suspect]
     Active Substance: QUETIAPINE
     Indication: BIPOLAR DISORDER
     Dosage: 400MG ONCE AT NIGHT PLUS 25-50MG THREE TIMES DAILY / AS NECESSARY
     Route: 048
     Dates: start: 20150204
  10. LAMOTRIGINE. [Suspect]
     Active Substance: LAMOTRIGINE
     Indication: BIPOLAR DISORDER
     Dosage: 50 MG ONCE DAILY, UNIT 3
     Route: 048
     Dates: start: 201501
  11. LAMOTRIGINE. [Suspect]
     Active Substance: LAMOTRIGINE
     Indication: BIPOLAR DISORDER
     Dosage: 3 DAYS PRESCRIPTION FOR LORAZEPAM 1 MG TWICE DAILY / AS NECESSARY
     Route: 048
  12. QUETIAPINE [Suspect]
     Active Substance: QUETIAPINE
     Indication: BIPOLAR DISORDER
     Route: 048
  13. LAMOTRIGINE. [Suspect]
     Active Substance: LAMOTRIGINE
     Indication: BIPOLAR DISORDER
     Dosage: 50MG OD FOR 2 WEEKS, UNIT 3
     Route: 048
  14. LAMOTRIGINE. [Suspect]
     Active Substance: LAMOTRIGINE
     Indication: BIPOLAR DISORDER
     Dosage: 100 MG ONCE DAILY, UNIT 3
     Route: 048
     Dates: start: 20150207, end: 20150209

REACTIONS (14)
  - Overdose [Fatal]
  - Cardiac arrest [Fatal]
  - Seizure [Fatal]
  - Bipolar I disorder [Unknown]
  - Mania [Unknown]
  - Family stress [Unknown]
  - Persecutory delusion [Not Recovered/Not Resolved]
  - Suicidal ideation [Unknown]
  - Intentional product misuse [Not Recovered/Not Resolved]
  - Delusion [Not Recovered/Not Resolved]
  - Panic attack [Unknown]
  - Sedation [Unknown]
  - Depression [Not Recovered/Not Resolved]
  - Malaise [Unknown]

NARRATIVE: CASE EVENT DATE: 20150204
